FAERS Safety Report 14285240 (Version 1)
Quarter: 2017Q4

REPORT INFORMATION
  Report Type: Spontaneous
  Country: NO (occurrence: NO)
  Receive Date: 20171214
  Receipt Date: 20171214
  Transmission Date: 20180321
  Serious: Yes (Hospitalization)
  Sender: FDA-Public Use
  Company Number: NO-SHIRE-NO201733212

PATIENT

DRUGS (1)
  1. REVESTIVE [Suspect]
     Active Substance: TEDUGLUTIDE
     Indication: SHORT-BOWEL SYNDROME
     Dosage: 0.05 MG/KG, 1X/DAY:QD
     Route: 065

REACTIONS (2)
  - Injection site erythema [Unknown]
  - Prescribed overdose [Unknown]

NARRATIVE: CASE EVENT DATE: 20171126
